FAERS Safety Report 10065499 (Version 1)
Quarter: 2014Q2

REPORT INFORMATION
  Report Type: Spontaneous
  Country: US (occurrence: US)
  Receive Date: 20140408
  Receipt Date: 20140408
  Transmission Date: 20141212
  Serious: No
  Sender: FDA-Public Use
  Company Number: US-BAYER-2014-051719

PATIENT
  Age: 53 Year
  Sex: Male
  Weight: 86.17 kg

DRUGS (3)
  1. ALEVE CAPLET [Suspect]
     Indication: ARTHRITIS
     Dosage: 2 DF, UNK
     Route: 048
     Dates: start: 2006, end: 2012
  2. ADVAIR [Concomitant]
     Indication: ASTHMA
     Dosage: UNK UNK, PRN
  3. CELEBREX [Concomitant]

REACTIONS (1)
  - Abdominal discomfort [Recovered/Resolved]
